FAERS Safety Report 19527236 (Version 3)
Quarter: 2023Q4

REPORT INFORMATION
  Report Type: Spontaneous
  Country: FR (occurrence: FR)
  Receive Date: 20210713
  Receipt Date: 20231211
  Transmission Date: 20240110
  Serious: Yes (Hospitalization)
  Sender: FDA-Public Use
  Company Number: None

PATIENT
  Age: 71 Year
  Sex: Female

DRUGS (14)
  1. URAPIDIL [Suspect]
     Active Substance: URAPIDIL
     Indication: Essential hypertension
     Dosage: 60 MILLIGRAM, QD
     Route: 048
  2. IRBESARTAN [Suspect]
     Active Substance: IRBESARTAN
     Indication: Essential hypertension
     Dosage: 75 MILLIGRAM, QD
     Route: 048
     Dates: end: 202012
  3. LANSOPRAZOLE [Suspect]
     Active Substance: LANSOPRAZOLE
     Indication: Product used for unknown indication
     Dosage: 15 MILLIGRAM, QD
     Route: 048
     Dates: end: 202012
  4. BISOPROLOL [Suspect]
     Active Substance: BISOPROLOL\BISOPROLOL FUMARATE
     Indication: Essential hypertension
     Dosage: 2.5 MILLIGRAM, QD
     Route: 048
  5. LETROZOLE [Suspect]
     Active Substance: LETROZOLE
     Indication: Breast cancer
     Dosage: 2.5 MILLIGRAM, QD
     Route: 048
     Dates: start: 202007
  6. FUROSEMIDE [Suspect]
     Active Substance: FUROSEMIDE
     Indication: Essential hypertension
     Dosage: 500 MILLIGRAM, QD
     Route: 048
  7. VALPROMIDE [Suspect]
     Active Substance: VALPROMIDE
     Indication: Product used for unknown indication
     Dosage: 2 DOSAGE FORM, QD
     Route: 048
  8. VALPROMIDE [Suspect]
     Active Substance: VALPROMIDE
     Dosage: 600 MILLIGRAM, QD
     Route: 048
  9. LEVOTHYROXINE [Suspect]
     Active Substance: LEVOTHYROXINE
     Indication: Hypothyroidism
     Dosage: 1 DOSAGE FORM, QD
     Route: 048
  10. LEVOTHYROXINE [Suspect]
     Active Substance: LEVOTHYROXINE
     Dosage: 25 MICROGRAM, QD
     Route: 048
  11. ELIQUIS [Suspect]
     Active Substance: APIXABAN
     Indication: Atrial fibrillation
     Dosage: 2 DOSAGE FORM, QD
     Route: 048
  12. ELIQUIS [Suspect]
     Active Substance: APIXABAN
     Dosage: 10 MILLIGRAM, QD
     Route: 048
  13. CORDARONE [Suspect]
     Active Substance: AMIODARONE HYDROCHLORIDE
     Indication: Atrial fibrillation
     Dosage: 1 DOSAGE FORM, QD
     Route: 048
  14. CORDARONE [Suspect]
     Active Substance: AMIODARONE HYDROCHLORIDE
     Dosage: 200 MILLIGRAM, QD
     Route: 048

REACTIONS (1)
  - Delusion [Recovered/Resolved]

NARRATIVE: CASE EVENT DATE: 20201201
